FAERS Safety Report 7459918-8 (Version None)
Quarter: 2011Q2

REPORT INFORMATION
  Report Type: 
  Country: None (occurrence: None)
  Receive Date: 20110427
  Receipt Date: 20110412
  Transmission Date: 20111010
  Serious: Yes (Hospitalization)
  Sender: FDA-Public Use
  Company Number: 014653

PATIENT
  Sex: Female

DRUGS (22)
  1. IMIDAPRIL HYDROCHLORIDE [Concomitant]
  2. ADONIS VERNALIS EXTRACT [Concomitant]
  3. FERROUS SULFATE TAB [Concomitant]
  4. KETOPROFEN [Concomitant]
  5. SENNOSIDE /00571902/ [Concomitant]
  6. ETIZOLAM [Concomitant]
  7. MILNAZIPRAN HYDROCHLORIDE [Concomitant]
  8. METHOTREXATE [Concomitant]
  9. SERTRALINE HYDROCHLORIDE [Concomitant]
  10. BERAPROST SODIUM [Concomitant]
  11. TRIAZOLAM [Concomitant]
  12. MELOXICAM [Concomitant]
  13. CIMZIA [Suspect]
     Indication: RHEUMATOID ARTHRITIS
     Dosage: (200 MG, C870-041 SUBCUTANEOUS), (400 MG 1X/MONTH SUBCUTANEOUS), (SUBCUTANEOUS)
     Route: 058
     Dates: start: 20091029, end: 20110101
  14. CIMZIA [Suspect]
     Indication: RHEUMATOID ARTHRITIS
     Dosage: (200 MG, C870-041 SUBCUTANEOUS), (400 MG 1X/MONTH SUBCUTANEOUS), (SUBCUTANEOUS)
     Route: 058
     Dates: start: 20090416, end: 20091015
  15. CIMZIA [Suspect]
     Indication: RHEUMATOID ARTHRITIS
     Dosage: (200 MG, C870-041 SUBCUTANEOUS), (400 MG 1X/MONTH SUBCUTANEOUS), (SUBCUTANEOUS)
     Route: 058
     Dates: start: 20110401
  16. SULPIRIDE [Concomitant]
  17. SOFALCONE [Concomitant]
  18. FOLIC ACID [Concomitant]
  19. MECONALAMIN [Concomitant]
  20. ATORVASTATIN CALCIUM [Concomitant]
  21. LITHIUM CARBONATE [Concomitant]
  22. CARBAMAZEPINE [Concomitant]

REACTIONS (7)
  - CONDITION AGGRAVATED [None]
  - ABNORMAL BEHAVIOUR [None]
  - SPEECH DISORDER [None]
  - DEMENTIA [None]
  - RHEUMATOID ARTHRITIS [None]
  - DISEASE PROGRESSION [None]
  - APATHY [None]
